FAERS Safety Report 6131742-8 (Version None)
Quarter: 2009Q1

REPORT INFORMATION
  Report Type: 
  Country: None (occurrence: None)
  Receive Date: 20090325
  Receipt Date: 20090320
  Transmission Date: 20090719
  Serious: Yes (Other)
  Sender: FDA-Public Use
  Company Number: PHEH2009US02867

PATIENT
  Age: 65 Year
  Sex: Female

DRUGS (2)
  1. TEKTURNA [Suspect]
     Indication: HYPERTENSION
     Dosage: 150 MG, QD
     Route: 048
     Dates: start: 20090201, end: 20090301
  2. ACTOS [Concomitant]
     Dosage: 15 MG, UNK
     Route: 048

REACTIONS (1)
  - OEDEMA PERIPHERAL [None]
